FAERS Safety Report 6470631-6 (Version None)
Quarter: 2009Q4

REPORT INFORMATION
  Report Type: 
  Country: None (occurrence: None)
  Receive Date: 20091203
  Receipt Date: 20091202
  Transmission Date: 20100525
  Serious: Yes (Other)
  Sender: FDA-Public Use
  Company Number: A0832841A

PATIENT
  Age: 62 Year
  Sex: Female

DRUGS (1)
  1. NICODERM CQ [Suspect]
     Indication: SMOKING CESSATION THERAPY
     Dosage: 14MG UNKNOWN
     Route: 062
     Dates: start: 20091130

REACTIONS (1)
  - VAGINAL HAEMORRHAGE [None]
